FAERS Safety Report 13817269 (Version 4)
Quarter: 2017Q3

REPORT INFORMATION
  Report Type: Spontaneous
  Country: US (occurrence: US)
  Receive Date: 20170731
  Receipt Date: 20170912
  Transmission Date: 20171127
  Serious: Yes (Hospitalization, Other)
  Sender: FDA-Public Use
  Company Number: US-TOLMAR, INC.-2017US009945

PATIENT
  Sex: Male

DRUGS (11)
  1. IRON [Suspect]
     Active Substance: IRON
     Indication: ANAEMIA
     Dosage: UNK
     Route: 065
  2. IBUPROFEN. [Suspect]
     Active Substance: IBUPROFEN
     Indication: PAIN
     Dosage: UNK
     Route: 065
  3. BENTYL [Suspect]
     Active Substance: DICYCLOMINE HYDROCHLORIDE
     Indication: ABDOMINAL PAIN
     Dosage: UNK
     Route: 065
  4. CASODEX [Suspect]
     Active Substance: BICALUTAMIDE
     Indication: PROSTATE CANCER
     Dosage: UNK
     Route: 065
  5. ELIGARD [Suspect]
     Active Substance: LEUPROLIDE ACETATE
     Indication: PROSTATE CANCER STAGE IV
     Route: 065
  6. PRILOSEC [Suspect]
     Active Substance: OMEPRAZOLE MAGNESIUM
     Indication: PEPTIC ULCER
     Dosage: UNK
     Route: 065
     Dates: start: 201609
  7. PRILOSEC [Suspect]
     Active Substance: OMEPRAZOLE MAGNESIUM
     Dosage: UNK
     Route: 065
     Dates: start: 20170711
  8. PERCOCET                           /00446701/ [Suspect]
     Active Substance: ACETAMINOPHEN\OXYCODONE HYDROCHLORIDE\OXYCODONE TEREPHTHALATE
     Indication: PRODUCT USED FOR UNKNOWN INDICATION
     Dosage: UNK
     Route: 065
  9. XTANDI [Suspect]
     Active Substance: ENZALUTAMIDE
     Indication: PROSTATE CANCER STAGE IV
     Dosage: 160 MG, ONCE DAILY
     Route: 065
     Dates: start: 20170526
  10. LUPRON [Suspect]
     Active Substance: LEUPROLIDE ACETATE
     Indication: PROSTATE CANCER
     Dosage: UNK
     Route: 065
  11. TAXOTERE [Concomitant]
     Active Substance: DOCETAXEL

REACTIONS (16)
  - Colostomy [Unknown]
  - Dry skin [Unknown]
  - Restless legs syndrome [Unknown]
  - Constipation [Unknown]
  - Abdominal pain [Unknown]
  - Weight decreased [Unknown]
  - Paraesthesia [Unknown]
  - Internal haemorrhage [Unknown]
  - Skin exfoliation [Unknown]
  - Faecaloma [Unknown]
  - Asthenia [Recovering/Resolving]
  - Large intestinal obstruction [Unknown]
  - Anaemia [Unknown]
  - Hot flush [Unknown]
  - Skin atrophy [Unknown]
  - Insomnia [Unknown]

NARRATIVE: CASE EVENT DATE: 2017
